FAERS Safety Report 4302235-5 (Version None)
Quarter: 2004Q1

REPORT INFORMATION
  Report Type: 
  Country: None (occurrence: None)
  Receive Date: 20040220
  Receipt Date: 20040205
  Transmission Date: 20041129
  Serious: Yes (Hospitalization)
  Sender: FDA-Public Use
  Company Number: 2004-06643

PATIENT
  Age: 49 Year
  Sex: Male

DRUGS (8)
  1. TENOFOVIR DF [Suspect]
     Indication: HIV INFECTION
     Dates: start: 20031201
  2. ZIDOVUDINE [Suspect]
     Indication: HIV INFECTION
     Dates: start: 20031201
  3. LAMIVUDINE [Suspect]
     Indication: HIV INFECTION
     Dates: start: 20031201
  4. VITAMIN B6 [Concomitant]
  5. ETHAMBUTOL HCL [Concomitant]
  6. ISONIAZID [Concomitant]
  7. AMITRIPTYLINE HCL [Concomitant]
  8. ALBENDAZOLE [Concomitant]

REACTIONS (12)
  - ASTHENIA [None]
  - DEHYDRATION [None]
  - DIARRHOEA [None]
  - EYES SUNKEN [None]
  - MEDICATION ERROR [None]
  - OVERDOSE [None]
  - PLASMODIUM FALCIPARUM INFECTION [None]
  - SEPSIS [None]
  - SKIN TURGOR DECREASED [None]
  - TONGUE COATED [None]
  - TONGUE DRY [None]
  - VOMITING [None]
